FAERS Safety Report 8685427 (Version 2)
Quarter: 2012Q4

REPORT INFORMATION
  Report Type: Report from Study
  Country: DE (occurrence: DE)
  Receive Date: 20120726
  Receipt Date: 20121130
  Transmission Date: 20130627
  Serious: Yes (Hospitalization)
  Sender: FDA-Public Use
  Company Number: DE-PFIZER INC-2011193295

PATIENT
  Age: 47 Year
  Sex: Male
  Weight: 85 kg

DRUGS (6)
  1. PLACEBO [Suspect]
     Indication: ST SEGMENT ELEVATION MYOCARDIAL INFARCTION
     Dosage: UNK
     Route: 048
     Dates: start: 20110805, end: 20110805
  2. PLACEBO [Suspect]
     Dosage: UNK
     Route: 048
     Dates: start: 20110806, end: 20120928
  3. RAMIPRIL [Suspect]
     Indication: CORONARY ARTERY DISEASE
     Dosage: 2.5 mg, 1x/day
     Route: 048
     Dates: start: 20110808, end: 20110819
  4. CONCOR [Suspect]
     Indication: HYPERTENSION ARTERIAL
     Dosage: 2.5 mg, 1x/day
     Route: 048
     Dates: start: 20110807, end: 20110819
  5. ASS [Concomitant]
     Indication: CORONARY ARTERY DISEASE NOS
     Dosage: 100 mg, 1x/day
     Route: 048
     Dates: start: 20110805
  6. PRASUGREL [Concomitant]
     Indication: MYOCARDIAL INFARCTION
     Dosage: 10 mg, 1x/day
     Dates: start: 20110805

REACTIONS (2)
  - Hypotension [Recovered/Resolved]
  - Bradycardia [Recovered/Resolved]
